FAERS Safety Report 25515658 (Version 2)
Quarter: 2025Q3

REPORT INFORMATION
  Report Type: Report from Study
  Country: US (occurrence: US)
  Receive Date: 20250704
  Receipt Date: 20250725
  Transmission Date: 20251020
  Serious: No
  Sender: SANDOZ
  Company Number: US-SANDOZ-SDZ2025US046389

PATIENT
  Sex: Male

DRUGS (4)
  1. OMNITROPE [Suspect]
     Active Substance: SOMATROPIN
     Dosage: 3 MG, 6 TIMES A DAY
     Route: 058
     Dates: start: 20250517, end: 20250716
  2. OMNITROPE [Suspect]
     Active Substance: SOMATROPIN
     Dosage: 3 MG, 6 TIMES A DAY
     Route: 058
     Dates: start: 20250517, end: 20250716
  3. OMNITROPE [Suspect]
     Active Substance: SOMATROPIN
     Indication: Short stature
     Dosage: 3 MG, QD, 10 MG/1.5 M
     Route: 058
  4. OMNITROPE [Suspect]
     Active Substance: SOMATROPIN
     Indication: Short stature
     Dosage: 3 MG, QD, 10 MG/1.5 M
     Route: 058

REACTIONS (2)
  - Product storage error [Unknown]
  - Device leakage [Unknown]
